FAERS Safety Report 4320049-7 (Version None)
Quarter: 2004Q1

REPORT INFORMATION
  Report Type: 
  Country: None (occurrence: None)
  Receive Date: 20040315
  Receipt Date: 20040114
  Transmission Date: 20041129
  Serious: No
  Sender: FDA-Public Use
  Company Number: 2004194466US

PATIENT
  Age: 66 Year
  Sex: Female

DRUGS (5)
  1. BEXTRA [Suspect]
     Indication: ARTHRITIS
     Dosage: 20 MG, UNK
     Dates: start: 20040107
  2. ZYRTEC [Concomitant]
  3. NASACORT [Concomitant]
  4. EVISTA [Concomitant]
  5. CRESTOR [Concomitant]

REACTIONS (1)
  - POSTNASAL DRIP [None]
